FAERS Safety Report 5812033-9 (Version None)
Quarter: 2008Q3

REPORT INFORMATION
  Report Type: 
  Country: None (occurrence: None)
  Receive Date: 20080716
  Receipt Date: 20080707
  Transmission Date: 20090109
  Serious: Yes (Other)
  Sender: FDA-Public Use
  Company Number: PHEH2008US05512

PATIENT
  Sex: Male
  Weight: 63.039 kg

DRUGS (1)
  1. FORADIL [Suspect]
     Dosage: UNK, UNK

REACTIONS (6)
  - CHRONIC OBSTRUCTIVE PULMONARY DISEASE [None]
  - COUGH [None]
  - DIZZINESS [None]
  - DYSPNOEA EXERTIONAL [None]
  - ELECTROCARDIOGRAM AMBULATORY [None]
  - PRODUCTIVE COUGH [None]
